FAERS Safety Report 4428016-X (Version None)
Quarter: 2004Q3

REPORT INFORMATION
  Report Type: 
  Country: None (occurrence: None)
  Receive Date: 20040813
  Receipt Date: 20040731
  Transmission Date: 20050211
  Serious: Yes (Other)
  Sender: FDA-Public Use
  Company Number: 2004052217

PATIENT
  Age: 52 Year
  Sex: Female
  Weight: 104.3273 kg

DRUGS (8)
  1. NEURONTIN [Suspect]
     Indication: ARTHRALGIA
     Dosage: 300 MG (300 MG, 1 IN 1 D), ORAL
     Route: 048
     Dates: start: 20030101
  2. DIAZEPAM [Suspect]
     Indication: ARTHRALGIA
     Dosage: AS NEEDED (5 MG), ORAL
     Route: 048
     Dates: end: 20040101
  3. LEVOTHYROXINE SODIUM [Concomitant]
  4. CONJUGATED ESTROGENS [Concomitant]
  5. POTASSIUM CHLORIDE [Concomitant]
  6. FUROSEMIDE [Concomitant]
  7. HYZAAR [Concomitant]
  8. VICODIN [Concomitant]

REACTIONS (19)
  - ABNORMAL BEHAVIOUR [None]
  - ACTIVITIES OF DAILY LIVING IMPAIRED [None]
  - BLOOD PRESSURE INCREASED [None]
  - CONDITION AGGRAVATED [None]
  - DIZZINESS [None]
  - DRUG INTERACTION [None]
  - FATIGUE [None]
  - FEELING ABNORMAL [None]
  - HANGOVER [None]
  - HYPERSOMNIA [None]
  - INSOMNIA [None]
  - LUMBAR PUNCTURE ABNORMAL [None]
  - PAIN [None]
  - PAIN EXACERBATED [None]
  - PHARMACEUTICAL PRODUCT COMPLAINT [None]
  - RENAL IMPAIRMENT [None]
  - SPEECH DISORDER [None]
  - THYROID DISORDER [None]
  - VISION BLURRED [None]
